FAERS Safety Report 7600677-3 (Version None)
Quarter: 2011Q3

REPORT INFORMATION
  Report Type: 
  Country: None (occurrence: None)
  Receive Date: 20110711
  Receipt Date: 20110706
  Transmission Date: 20111222
  Serious: Yes (Hospitalization, Other)
  Sender: FDA-Public Use
  Company Number: BR-ROCHE-787960

PATIENT
  Sex: Female
  Weight: 76 kg

DRUGS (11)
  1. CLONAZEPAM [Suspect]
     Dosage: FREQUENCY: 2MG/TABLET
     Route: 065
     Dates: end: 20110629
  2. ATENOLOL [Concomitant]
     Indication: BLOOD PRESSURE ABNORMAL
     Dates: start: 20090101
  3. FLUOXETINE HCL [Concomitant]
     Indication: DEPRESSION
     Dates: start: 20050101
  4. CLONAZEPAM [Suspect]
     Indication: SLEEP DISORDER THERAPY
     Dosage: FREQUENCY: 0.5MG/TABLET
     Route: 065
     Dates: start: 20030101
  5. CLONAZEPAM [Suspect]
     Route: 065
     Dates: start: 20110705
  6. AZUKON [Concomitant]
     Dates: start: 20070101
  7. SIMVASTATIN [Concomitant]
     Indication: BLOOD CHOLESTEROL ABNORMAL
  8. METFORMIN HCL [Concomitant]
     Dates: start: 19990101
  9. HYDROCHLOROTHIAZIDE [Concomitant]
  10. LOSARTAN POTASSIUM [Concomitant]
     Dates: start: 20090101
  11. CLONAZEPAM [Suspect]
     Dosage: FREQUENCY: 1MG/TABLET
     Route: 065

REACTIONS (3)
  - NERVOUS SYSTEM DISORDER [None]
  - WITHDRAWAL SYNDROME [None]
  - CARDIAC DISORDER [None]
